FAERS Safety Report 4820679-X (Version None)
Quarter: 2005Q4

REPORT INFORMATION
  Report Type: 
  Country: None (occurrence: None)
  Receive Date: 20051104
  Receipt Date: 20051026
  Transmission Date: 20060501
  Serious: Yes (Hospitalization)
  Sender: FDA-Public Use
  Company Number: DE-JNJFOC-20051005689

PATIENT
  Sex: Female

DRUGS (1)
  1. CONCERTA [Suspect]
     Route: 048
     Dates: start: 20050801, end: 20050804

REACTIONS (4)
  - HALLUCINATION, VISUAL [None]
  - PARANOIA [None]
  - PERSECUTORY DELUSION [None]
  - PSYCHOTIC DISORDER [None]
